FAERS Safety Report 17603163 (Version 1)
Quarter: 2020Q1

REPORT INFORMATION
  Report Type: Report from Study
  Country: BR (occurrence: BR)
  Receive Date: 20200331
  Receipt Date: 20200331
  Transmission Date: 20200409
  Serious: Yes (Hospitalization, Other)
  Sender: FDA-Public Use
  Company Number: NVSC2020BR072318

PATIENT
  Age: 63 Year
  Sex: Male

DRUGS (2)
  1. TAFINLAR [Suspect]
     Active Substance: DABRAFENIB MESYLATE
     Indication: MALIGNANT MELANOMA
     Dosage: UNK
     Route: 065
     Dates: start: 20200217, end: 20200306
  2. MEKINIST [Suspect]
     Active Substance: TRAMETINIB DIMETHYL SULFOXIDE
     Indication: MALIGNANT MELANOMA
     Dosage: UNK
     Route: 065
     Dates: start: 20200217, end: 20200306

REACTIONS (31)
  - Dehydration [Recovered/Resolved]
  - Thrombocytopenia [Unknown]
  - Electrolyte imbalance [Recovered/Resolved]
  - Rash erythematous [Recovered/Resolved]
  - Pyrexia [Recovered/Resolved]
  - Eating disorder [Unknown]
  - Dysuria [Recovered/Resolved]
  - Erythema [Recovering/Resolving]
  - Pain [Not Recovered/Not Resolved]
  - Anxiety [Recovered/Resolved]
  - Dengue fever [Unknown]
  - Blood creatinine increased [Recovered/Resolved]
  - Pyrexia [Recovered/Resolved]
  - Synovial cyst [Unknown]
  - Platelet count decreased [Recovered/Resolved]
  - Vomiting [Recovered/Resolved]
  - Renal failure [Recovered/Resolved]
  - Bacteraemia [Recovered/Resolved]
  - Chills [Recovered/Resolved]
  - Asthenia [Unknown]
  - Nausea [Recovered/Resolved]
  - Dry mouth [Not Recovered/Not Resolved]
  - Abdominal discomfort [Recovered/Resolved]
  - Malaise [Unknown]
  - Skin lesion [Unknown]
  - Pyrexia [Recovered/Resolved]
  - C-reactive protein abnormal [Unknown]
  - Diarrhoea [Recovered/Resolved]
  - Chromaturia [Recovered/Resolved]
  - Renal disorder [Recovered/Resolved]
  - Hypotension [Recovered/Resolved]

NARRATIVE: CASE EVENT DATE: 20200220
